FAERS Safety Report 7357445-X (Version None)
Quarter: 2011Q1

REPORT INFORMATION
  Report Type: 
  Country: None (occurrence: None)
  Receive Date: 20110317
  Receipt Date: 20110216
  Transmission Date: 20110831
  Serious: Yes (Other)
  Sender: FDA-Public Use
  Company Number: US-BAYER-201026237NA

PATIENT
  Sex: Female
  Weight: 117 kg

DRUGS (3)
  1. YAZ [Suspect]
     Indication: PRODUCT USED FOR UNKNOWN INDICATION
     Route: 048
     Dates: start: 20080501
  2. OCELLA [Suspect]
     Indication: PRODUCT USED FOR UNKNOWN INDICATION
     Route: 048
     Dates: start: 20080501
  3. YASMIN [Suspect]
     Indication: PRODUCT USED FOR UNKNOWN INDICATION
     Route: 048
     Dates: start: 20080501

REACTIONS (8)
  - MENSTRUAL DISORDER [None]
  - EMOTIONAL DISTRESS [None]
  - UTERINE HAEMORRHAGE [None]
  - INFERTILITY FEMALE [None]
  - DEPRESSION [None]
  - ANXIETY [None]
  - PAIN [None]
  - GALLBLADDER INJURY [None]
